FAERS Safety Report 8516068-7 (Version None)
Quarter: 2012Q3

REPORT INFORMATION
  Report Type: 
  Country: None (occurrence: None)
  Receive Date: 20120717
  Receipt Date: 20120705
  Transmission Date: 20120928
  Serious: Yes (Hospitalization, Other)
  Sender: FDA-Public Use
  Company Number: DK-BAXTER-2012BH004923

PATIENT
  Sex: Female
  Weight: 58 kg

DRUGS (27)
  1. CYCLOPHOSPHAMIDE [Suspect]
     Indication: DIFFUSE LARGE B-CELL LYMPHOMA
     Dosage: 1320 MG, UNK
     Route: 042
     Dates: start: 20120109
  2. PREDNISONE [Suspect]
     Dosage: 100 MG, UNK
     Route: 048
     Dates: start: 20120123
  3. PREDNISONE [Suspect]
     Dosage: 100 MG, UNK
     Route: 048
     Dates: start: 20120213
  4. PREDNISONE [Suspect]
     Dosage: 100 MG, UNK
     Route: 048
     Dates: start: 20120217
  5. VINCRISTINE [Suspect]
     Dosage: 42 MG, UNK
     Route: 042
     Dates: start: 20120123
  6. PEGFILGRASTIM [Suspect]
     Dosage: 6 MG, UNK
     Route: 058
     Dates: start: 20120214
  7. MORPHINE SULFATE [Concomitant]
     Dosage: 10 MG, UNK
     Route: 048
     Dates: start: 20111201
  8. VINCRISTINE [Suspect]
     Indication: DIFFUSE LARGE B-CELL LYMPHOMA
     Dosage: 2 MG, UNK
     Route: 042
     Dates: start: 20120109
  9. RITUXAN [Suspect]
     Dosage: 600 MG, UNK
     Route: 042
     Dates: start: 20120218
  10. PANTOPRAZOLE [Concomitant]
     Dosage: 40 MG, UNK
     Route: 048
     Dates: start: 20120105
  11. MIRTAZAPINE [Concomitant]
     Indication: DEPRESSION
     Dosage: 15 MG, UNK
     Route: 048
     Dates: start: 20111219
  12. DOXORUBICIN HCL [Suspect]
     Indication: DIFFUSE LARGE B-CELL LYMPHOMA
     Dosage: 88 MG, UNK
     Route: 042
     Dates: start: 20120109
  13. VINCRISTINE [Suspect]
     Dosage: 2 MG
     Route: 042
     Dates: start: 20120213
  14. PEGFILGRASTIM [Suspect]
     Dosage: 6 MG, UNK
     Route: 058
     Dates: start: 20120128
  15. DOXORUBICIN HCL [Suspect]
     Dosage: 90 MG, UNK
     Dates: start: 20120123
  16. PREDNISONE [Suspect]
     Indication: DIFFUSE LARGE B-CELL LYMPHOMA
     Dosage: 100 MG, UNK
     Route: 048
     Dates: start: 20120123
  17. PEGFILGRASTIM [Suspect]
     Indication: DIFFUSE LARGE B-CELL LYMPHOMA
     Dosage: 6 MG, UNK
     Route: 058
     Dates: start: 20120110
  18. TENORETIC [Concomitant]
     Indication: HYPERTENSION
     Dosage: 72.5 MG, UNK
     Route: 048
     Dates: start: 20111218
  19. SIMVASTATIN [Concomitant]
     Dosage: 40 MG, UNK
     Dates: start: 20110914
  20. DOXORUBICIN HCL [Suspect]
     Dosage: 85 MG, UNK
     Route: 042
     Dates: start: 20120213
  21. CYCLOPHOSPHAMIDE [Suspect]
     Dosage: 1350 MG, UNK
     Route: 042
     Dates: start: 20120123
  22. CYCLOPHOSPHAMIDE [Suspect]
     Dosage: 1275 MG, UNK
     Route: 042
     Dates: start: 20120213
  23. VENLAFAXINE HYDROCHOLRIDE [Concomitant]
     Indication: DEPRESSION
     Dosage: 75 MG, UNK
     Route: 048
     Dates: start: 20120105
  24. RITUXAN [Suspect]
     Indication: DIFFUSE LARGE B-CELL LYMPHOMA
     Dosage: 600 MG, UNK
     Route: 042
     Dates: start: 20120109
  25. RITUXAN [Suspect]
     Dosage: 700 MG, UNK
     Route: 042
     Dates: start: 20120123
  26. SIMVASTATIN [Concomitant]
     Dosage: 40 MG, UNK
     Route: 048
     Dates: start: 20100917
  27. SIMVASTATIN [Concomitant]
     Dosage: 15 MG, UNK
     Dates: start: 20111219

REACTIONS (4)
  - WEIGHT DECREASED [None]
  - ORAL CANDIDIASIS [None]
  - DIZZINESS [None]
  - DEHYDRATION [None]
